FAERS Safety Report 7098376-2 (Version None)
Quarter: 2010Q4

REPORT INFORMATION
  Report Type: 
  Country: None (occurrence: None)
  Receive Date: 20101112
  Receipt Date: 20101108
  Transmission Date: 20110411
  Serious: Yes (Other)
  Sender: FDA-Public Use
  Company Number: US-PFIZER INC-2010143269

PATIENT
  Sex: Female
  Weight: 45.351 kg

DRUGS (9)
  1. NEURONTIN [Suspect]
     Indication: PARKINSON'S DISEASE
     Dosage: 400 MG, 3X/DAY
     Route: 048
     Dates: end: 20100101
  2. NEURONTIN [Suspect]
     Indication: DISCOMFORT
  3. NEURONTIN [Suspect]
     Indication: ACCIDENT
  4. GABAPENTIN [Suspect]
     Indication: PARKINSON'S DISEASE
     Dosage: 400 MG, 3X/DAY
     Route: 048
     Dates: start: 20090101, end: 20101101
  5. GABAPENTIN [Suspect]
     Indication: ACCIDENT
  6. GABAPENTIN [Suspect]
     Indication: DISCOMFORT
  7. AMANTADINE [Concomitant]
     Indication: PARKINSON'S DISEASE
     Dosage: UNK
  8. ACETYLSALICYLIC ACID [Concomitant]
     Indication: ARRHYTHMIA
     Dosage: UNK
  9. MS CONTIN [Concomitant]
     Dosage: UNK

REACTIONS (11)
  - ABDOMINAL PAIN UPPER [None]
  - BALANCE DISORDER [None]
  - COORDINATION ABNORMAL [None]
  - DIZZINESS [None]
  - DRUG INTOLERANCE [None]
  - FATIGUE [None]
  - HYPERTENSION [None]
  - MALAISE [None]
  - MEMORY IMPAIRMENT [None]
  - SPEECH DISORDER [None]
  - VISUAL IMPAIRMENT [None]
